FAERS Safety Report 6699472-1 (Version None)
Quarter: 2010Q2

REPORT INFORMATION
  Report Type: 
  Country: None (occurrence: None)
  Receive Date: 20100426
  Receipt Date: 20100421
  Transmission Date: 20101027
  Serious: Yes (Death)
  Sender: FDA-Public Use
  Company Number: ALL1-2010-00338

PATIENT
  Age: 83 Year
  Sex: Female

DRUGS (1)
  1. FOSRENOL [Suspect]
     Indication: RENAL FAILURE CHRONIC
     Dosage: 1000 MG, 4X/DAY:QID, ORAL
     Route: 048

REACTIONS (1)
  - TREATMENT NONCOMPLIANCE [None]
